FAERS Safety Report 12503501 (Version 2)
Quarter: 2016Q3

REPORT INFORMATION
  Report Type: Spontaneous
  Country: IL (occurrence: IL)
  Receive Date: 20160628
  Receipt Date: 20160906
  Transmission Date: 20161109
  Serious: Yes (Life-Threatening, Hospitalization, Other)
  Sender: FDA-Public Use
  Company Number: IL-009507513-1508ISR007112

PATIENT
  Age: 57 Year
  Sex: Female

DRUGS (1)
  1. KEYTRUDA [Suspect]
     Active Substance: PEMBROLIZUMAB
     Indication: MALIGNANT MELANOMA
     Dosage: UNK
     Route: 051
     Dates: start: 201501, end: 201507

REACTIONS (8)
  - Pemphigoid [Recovering/Resolving]
  - Metastases to lung [Not Recovered/Not Resolved]
  - Addison^s disease [Recovering/Resolving]
  - Thyroid disorder [Unknown]
  - Primary adrenal insufficiency [Unknown]
  - Hypothyroidism [Recovering/Resolving]
  - Malignant neoplasm progression [Not Recovered/Not Resolved]
  - Lung disorder [Unknown]

NARRATIVE: CASE EVENT DATE: 2015
